FAERS Safety Report 7101653-X (Version None)
Quarter: 2010Q4

REPORT INFORMATION
  Report Type: 
  Country: None (occurrence: None)
  Receive Date: 20101115
  Receipt Date: 20100622
  Transmission Date: 20110411
  Serious: Yes (Hospitalization)
  Sender: FDA-Public Use
  Company Number: US-BAYER-201020522NA

PATIENT
  Age: 48 Year
  Sex: Female
  Weight: 59 kg

DRUGS (9)
  1. YASMIN [Suspect]
     Indication: ORAL CONTRACEPTION
     Route: 048
     Dates: start: 20020101, end: 20080801
  2. IBUPROFEN [Concomitant]
     Dates: start: 20000101
  3. ZYRTEC [Concomitant]
     Dates: start: 20000101
  4. METFORMIN HCL [Concomitant]
     Indication: POLYCYSTIC OVARIES
  5. GLUCOPHAGE [Concomitant]
     Dosage: UNIT DOSE: 500 MG
  6. NYSTATIN [Concomitant]
     Dosage: TOTAL DAILY DOSE: 300 MG  UNIT DOSE: 100 MG
  7. ALLEGRA [Concomitant]
     Dosage: ONE TABLET
  8. MULTI-VITAMIN [Concomitant]
  9. LYRICA [Concomitant]
     Indication: NEUROPATHY PERIPHERAL
     Dosage: TOTAL DAILY DOSE: 50 MG  UNIT DOSE: 25 MG

REACTIONS (11)
  - AMNESIA [None]
  - APHASIA [None]
  - DIZZINESS [None]
  - EYE PAIN [None]
  - FACIAL PAIN [None]
  - HEADACHE [None]
  - HYPERHIDROSIS [None]
  - HYPOAESTHESIA [None]
  - ISCHAEMIC STROKE [None]
  - PARAESTHESIA [None]
  - SPEECH DISORDER [None]
